FAERS Safety Report 12131019 (Version 3)
Quarter: 2016Q2

REPORT INFORMATION
  Report Type: Spontaneous
  Country: US (occurrence: US)
  Receive Date: 20160301
  Receipt Date: 20160405
  Transmission Date: 20160815
  Serious: No
  Sender: FDA-Public Use
  Company Number: US-PFIZER INC-2016118170

PATIENT
  Age: 60 Year
  Sex: Female

DRUGS (2)
  1. PRISTIQ EXTENDED-RELEASE [Suspect]
     Active Substance: DESVENLAFAXINE SUCCINATE
     Dosage: 50 G, 1X/DAY
  2. PRISTIQ EXTENDED-RELEASE [Suspect]
     Active Substance: DESVENLAFAXINE SUCCINATE
     Indication: ANTIDEPRESSANT THERAPY
     Dosage: 50 MG, UNK

REACTIONS (10)
  - Stress [Unknown]
  - Amnesia [Unknown]
  - Headache [Unknown]
  - Overdose [Unknown]
  - Food craving [Unknown]
  - Feeding disorder [Unknown]
  - Drug ineffective [Recovered/Resolved]
  - Condition aggravated [Unknown]
  - Alopecia [Recovered/Resolved]
  - Decreased appetite [Recovering/Resolving]
